FAERS Safety Report 14017165 (Version 1)
Quarter: 2017Q3

REPORT INFORMATION
  Report Type: Report from Study
  Country: IT (occurrence: IT)
  Receive Date: 20170927
  Receipt Date: 20170927
  Transmission Date: 20171128
  Serious: Yes (Hospitalization, Other)
  Sender: FDA-Public Use
  Company Number: IT-MYLANLABS-2017M1058728

PATIENT
  Age: 23 Year
  Sex: Female
  Weight: 90 kg

DRUGS (3)
  1. EUTIMIL [Concomitant]
     Active Substance: PAROXETINE HYDROCHLORIDE
     Indication: PRODUCT USED FOR UNKNOWN INDICATION
  2. QUETIAPINE. [Suspect]
     Active Substance: QUETIAPINE
     Indication: PSYCHOTIC DISORDER
     Dosage: 21 DF, TOTAL
     Route: 048
     Dates: start: 20170529
  3. RIVOTRIL [Concomitant]
     Active Substance: CLONAZEPAM
     Indication: PRODUCT USED FOR UNKNOWN INDICATION

REACTIONS (6)
  - Drug abuse [Recovered/Resolved]
  - Loss of consciousness [Recovered/Resolved]
  - Acute respiratory failure [Recovered/Resolved]
  - Pneumonia aspiration [Recovered/Resolved]
  - Electrocardiogram QT prolonged [Recovered/Resolved]
  - Sinus tachycardia [Recovered/Resolved]

NARRATIVE: CASE EVENT DATE: 20170529
